FAERS Safety Report 13115173 (Version 1)
Quarter: 2017Q1

REPORT INFORMATION
  Report Type: Spontaneous
  Country: HR (occurrence: HR)
  Receive Date: 20170113
  Receipt Date: 20170113
  Transmission Date: 20170428
  Serious: Yes (Disabling, Other)
  Sender: FDA-Public Use
  Company Number: HR-GLAXOSMITHKLINE-HR2017GSK002447

PATIENT
  Sex: Male

DRUGS (1)
  1. REQUIP [Suspect]
     Active Substance: ROPINIROLE HYDROCHLORIDE
     Indication: PARKINSON^S DISEASE
     Dosage: UNK
     Route: 048
     Dates: start: 2011

REACTIONS (5)
  - Mental impairment [Unknown]
  - Ill-defined disorder [Unknown]
  - Abnormal behaviour [Not Recovered/Not Resolved]
  - Judgement impaired [Unknown]
  - Activities of daily living impaired [Unknown]
